FAERS Safety Report 19717748 (Version 1)
Quarter: 2021Q3

REPORT INFORMATION
  Report Type: Report from Study
  Country: JP (occurrence: JP)
  Receive Date: 20210818
  Receipt Date: 20210818
  Transmission Date: 20211014
  Serious: Yes (Hospitalization)
  Sender: FDA-Public Use
  Company Number: JP-PFIZER INC-202101023627

PATIENT
  Age: 75 Year
  Sex: Male
  Weight: 57 kg

DRUGS (6)
  1. XELJANZ [Suspect]
     Active Substance: TOFACITINIB CITRATE
     Dosage: 10 MG, DAILY
     Route: 048
     Dates: end: 20210129
  2. CARERAM [Concomitant]
     Active Substance: IGURATIMOD
     Dosage: 25 MG, 1X/DAY
     Dates: start: 20170612
  3. VONOPRAZAN [Concomitant]
     Active Substance: VONOPRAZAN
     Dosage: 10 MG, 1X/DAY
     Route: 048
  4. METHOTREXATE SODIUM. [Suspect]
     Active Substance: METHOTREXATE SODIUM
     Dosage: 12 MG, WEEKLY
     Route: 048
     Dates: start: 20160707
  5. METHOTREXATE SODIUM. [Suspect]
     Active Substance: METHOTREXATE SODIUM
     Dosage: 16 MG, WEEKLY
     Route: 048
     Dates: end: 20210129
  6. XELJANZ [Suspect]
     Active Substance: TOFACITINIB CITRATE
     Indication: RHEUMATOID ARTHRITIS
     Dosage: 5 MG, 2X/DAY
     Route: 048
     Dates: start: 20161112

REACTIONS (1)
  - Inflammatory pseudotumour [Recovered/Resolved with Sequelae]

NARRATIVE: CASE EVENT DATE: 20210129
